FAERS Safety Report 4651018-5 (Version None)
Quarter: 2005Q2

REPORT INFORMATION
  Report Type: 
  Country: None (occurrence: None)
  Receive Date: 20050429
  Receipt Date: 20050421
  Transmission Date: 20051028
  Serious: Yes (Death, Other)
  Sender: FDA-Public Use
  Company Number: 2004046187

PATIENT
  Age: 27 Year
  Sex: Male

DRUGS (1)
  1. GEODON [Suspect]
     Indication: ILL-DEFINED DISORDER

REACTIONS (3)
  - CARDIO-RESPIRATORY ARREST [None]
  - PULMONARY EMBOLISM [None]
  - SUDDEN DEATH [None]
